FAERS Safety Report 8296840-1 (Version None)
Quarter: 2012Q2

REPORT INFORMATION
  Report Type: 
  Country: None (occurrence: None)
  Receive Date: 20120419
  Receipt Date: 20120417
  Transmission Date: 20120825
  Serious: Yes (Death, Hospitalization)
  Sender: FDA-Public Use
  Company Number: FR-BRISTOL-MYERS SQUIBB COMPANY-16426827

PATIENT
  Age: 88 Year
  Sex: Female
  Weight: 59 kg

DRUGS (5)
  1. GENTAMICIN [Suspect]
     Route: 042
     Dates: start: 20120202, end: 20120206
  2. AMOXICILLIN TRIHYDRATE [Suspect]
     Dosage: DISPERSIBLE TABLET
     Route: 048
     Dates: start: 20120129, end: 20120205
  3. AMOXICILLIN [Suspect]
     Dosage: POWDER FOR SOLUTION FOR INJECTION
     Route: 042
     Dates: start: 20120206, end: 20120209
  4. LASIX [Suspect]
     Indication: PLEURAL EFFUSION
     Dates: start: 20120131, end: 20120212
  5. CEFEPIME [Suspect]
     Route: 042
     Dates: start: 20120202, end: 20120207

REACTIONS (4)
  - DRUG LEVEL INCREASED [None]
  - RENAL FAILURE ACUTE [None]
  - STATUS EPILEPTICUS [None]
  - CONFUSIONAL STATE [None]
